FAERS Safety Report 4306757-2 (Version None)
Quarter: 2004Q1

REPORT INFORMATION
  Report Type: 
  Country: None (occurrence: None)
  Receive Date: 20040227
  Receipt Date: 20040217
  Transmission Date: 20041129
  Serious: Yes (Other)
  Sender: FDA-Public Use
  Company Number: JP-BRISTOL-MYERS SQUIBB COMPANY-12514972

PATIENT
  Age: 24 Year
  Sex: Female

DRUGS (7)
  1. GATIFLO [Suspect]
     Indication: LARYNGOPHARYNGITIS
     Route: 048
     Dates: start: 20040113, end: 20040117
  2. DASEN [Concomitant]
     Route: 048
     Dates: start: 20040113, end: 20040117
  3. LOXONIN [Concomitant]
     Route: 048
     Dates: start: 20040113, end: 20040117
  4. NIPOLAZINE [Concomitant]
     Route: 048
     Dates: start: 20040113, end: 20040117
  5. MUCOSTA [Concomitant]
     Route: 048
     Dates: start: 20040113, end: 20040117
  6. MINOMYCIN [Concomitant]
     Dates: start: 20030904
  7. CHINESE HERBS [Concomitant]
     Dosage: TSUMURA 50 CHINESE HERBAL MEDICATION FROM 04-SEP-2003 TO 22-OCT-2003, RESTARTED 20-NOV-2003
     Dates: start: 20030904

REACTIONS (1)
  - HYPOGLYCAEMIA [None]
